FAERS Safety Report 26060829 (Version 2)
Quarter: 2025Q4

REPORT INFORMATION
  Report Type: Spontaneous
  Country: US (occurrence: US)
  Receive Date: 20251118
  Receipt Date: 20251124
  Transmission Date: 20260118
  Serious: Yes (Hospitalization, Other)
  Sender: PFIZER
  Company Number: US-MLMSERVICE-20251105-PI700716-00328-1

PATIENT
  Age: 45 Year
  Sex: Female

DRUGS (16)
  1. METOPROLOL TARTRATE [Suspect]
     Active Substance: METOPROLOL TARTRATE
     Dosage: UNK
  2. NIFEDIPINE [Suspect]
     Active Substance: NIFEDIPINE
     Dosage: UNK
  3. VALSARTAN [Suspect]
     Active Substance: VALSARTAN
     Dosage: UNK
  4. ASPIRIN [Concomitant]
     Active Substance: ASPIRIN
     Dosage: UNK, AS NEEDED
  5. ATORVASTATIN [Concomitant]
     Active Substance: ATORVASTATIN
     Dosage: UNK, AS NEEDED
  6. BUPROPION [Concomitant]
     Active Substance: BUPROPION
     Dosage: UNK, AS NEEDED
  7. CHOLESTYRAMINE [Concomitant]
     Active Substance: CHOLESTYRAMINE
     Dosage: UNK, AS NEEDED
  8. CLONAZEPAM [Concomitant]
     Active Substance: CLONAZEPAM
     Dosage: UNK, AS NEEDED
  9. FLUVOXAMINE [Concomitant]
     Active Substance: FLUVOXAMINE
     Dosage: UNK, AS NEEDED
  10. OMEPRAZOLE [Concomitant]
     Active Substance: OMEPRAZOLE
     Dosage: UNK, AS NEEDED
  11. PREGABALIN [Concomitant]
     Active Substance: PREGABALIN
     Dosage: UNK, AS NEEDED
  12. RIMEGEPANT [Concomitant]
     Active Substance: RIMEGEPANT
     Indication: Migraine
     Dosage: UNK, AS NEEDED
  13. RISPERIDONE [Concomitant]
     Active Substance: RISPERIDONE
     Dosage: UNK, AS NEEDED
  14. USTEKINUMAB [Concomitant]
     Active Substance: USTEKINUMAB
     Dosage: UNK, AS NEEDED
  15. TOPIRAMATE [Concomitant]
     Active Substance: TOPIRAMATE
     Dosage: UNK, AS NEEDED
  16. ZOLPIDEM [Concomitant]
     Active Substance: ZOLPIDEM TARTRATE
     Dosage: UNK, AS NEEDED

REACTIONS (4)
  - Loss of consciousness [Recovering/Resolving]
  - Fall [Recovering/Resolving]
  - Syncope [Recovering/Resolving]
  - Orthostatic hypotension [Recovering/Resolving]
